FAERS Safety Report 4965185-7 (Version None)
Quarter: 2006Q1

REPORT INFORMATION
  Report Type: 
  Country: None (occurrence: None)
  Receive Date: 20060207
  Receipt Date: 20050405
  Transmission Date: 20060701
  Serious: Yes (Life-Threatening)
  Sender: FDA-Public Use
  Company Number: 243389

PATIENT
  Age: 67 Year
  Sex: Male
  Weight: 56.2 kg

DRUGS (10)
  1. NOVOLOG [Suspect]
     Indication: DIABETES MELLITUS INSULIN-DEPENDENT
     Dosage: 1 IU, QD, SUBCUTANEOUS
     Route: 058
     Dates: start: 20020101
  2. LANTUS [Suspect]
     Indication: DIABETES MELLITUS INSULIN-DEPENDENT
     Dosage: SUBCUTANEOUS
     Route: 058
  3. NOVOPEN 3 (INSULIN DELIVERY DEVICE) [Concomitant]
  4. NOVOFINE 31 (NEEDLE) [Concomitant]
  5. COUMADIN [Concomitant]
  6. ASPIRIN [Concomitant]
  7. ALTACE [Concomitant]
  8. NORVASC [Concomitant]
  9. FOLIC ACID  ACO   (FOLIC ACID) [Concomitant]
  10. MULTI-VITAMIN [Concomitant]

REACTIONS (1)
  - HYPOGLYCAEMIC COMA [None]
